FAERS Safety Report 8483567-6 (Version None)
Quarter: 2012Q3

REPORT INFORMATION
  Report Type: 
  Country: None (occurrence: None)
  Receive Date: 20120702
  Receipt Date: 20120626
  Transmission Date: 20120928
  Serious: Yes (Hospitalization, Other)
  Sender: FDA-Public Use
  Company Number: US-MERCK-1202USA03888

PATIENT
  Age: 82 Year
  Sex: Female

DRUGS (12)
  1. ALENDRONATE SODIUM [Suspect]
     Route: 048
     Dates: start: 20100225, end: 20100826
  2. FOSAMAX [Suspect]
     Route: 048
     Dates: start: 20000406, end: 20010505
  3. FOSAMAX [Suspect]
     Route: 048
     Dates: start: 20000406, end: 20010505
  4. FOSAMAX [Suspect]
     Route: 048
     Dates: start: 20080410, end: 20081003
  5. ALENDRONATE SODIUM [Suspect]
     Indication: OSTEOPOROSIS
     Route: 048
     Dates: start: 20081224, end: 20091203
  6. ALENDRONATE SODIUM [Suspect]
     Route: 048
     Dates: start: 20100225, end: 20100826
  7. FOSAMAX [Suspect]
     Indication: OSTEOPOROSIS
     Route: 048
     Dates: start: 19990101
  8. FOSAMAX [Suspect]
     Route: 048
     Dates: start: 20080410, end: 20081003
  9. FOSAMAX [Suspect]
     Route: 048
     Dates: start: 20011011, end: 20080108
  10. FOSAMAX [Suspect]
     Indication: OSTEOPENIA
     Route: 048
     Dates: start: 19990101
  11. FOSAMAX [Suspect]
     Route: 048
     Dates: start: 20011011, end: 20080108
  12. ALENDRONATE SODIUM [Suspect]
     Indication: OSTEOPENIA
     Route: 048
     Dates: start: 20081224, end: 20091203

REACTIONS (22)
  - APPENDIX DISORDER [None]
  - BLOOD PRESSURE INCREASED [None]
  - FALL [None]
  - HYPOKALAEMIA [None]
  - LOW TURNOVER OSTEOPATHY [None]
  - SPINAL OSTEOARTHRITIS [None]
  - OEDEMA PERIPHERAL [None]
  - UTERINE DISORDER [None]
  - HYPONATRAEMIA [None]
  - TOOTH LOSS [None]
  - LEUKOCYTOSIS [None]
  - PAIN IN EXTREMITY [None]
  - ANAEMIA [None]
  - GASTROOESOPHAGEAL REFLUX DISEASE [None]
  - PUBIS FRACTURE [None]
  - PAIN [None]
  - FEMUR FRACTURE [None]
  - DEPRESSION [None]
  - ROTATOR CUFF SYNDROME [None]
  - MUSCULOSKELETAL PAIN [None]
  - AZOTAEMIA [None]
  - ANXIETY [None]
